FAERS Safety Report 23357119 (Version 3)
Quarter: 2024Q1

REPORT INFORMATION
  Report Type: Spontaneous
  Country: PR (occurrence: PR)
  Receive Date: 20240102
  Receipt Date: 20240318
  Transmission Date: 20240409
  Serious: No
  Sender: FDA-Public Use
  Company Number: PR-PFIZER INC-202300439066

PATIENT
  Age: 13 Year
  Sex: Male
  Weight: 31.75 kg

DRUGS (2)
  1. GENOTROPIN [Suspect]
     Active Substance: SOMATROPIN
     Indication: Hypopituitarism
     Dosage: 1.2 MG, DAILY
     Dates: start: 202208
  2. MINERALS\VITAMINS [Concomitant]
     Active Substance: MINERALS\VITAMINS
     Dosage: UNK, DAILY (TAKEN DAILY)

REACTIONS (4)
  - Off label use [Unknown]
  - Drug dose omission by device [Unknown]
  - Product administered at inappropriate site [Unknown]
  - Device delivery system issue [Not Recovered/Not Resolved]
